FAERS Safety Report 14026657 (Version 4)
Quarter: 2017Q4

REPORT INFORMATION
  Report Type: Spontaneous
  Country: US (occurrence: US)
  Receive Date: 20170929
  Receipt Date: 20171018
  Transmission Date: 20180321
  Serious: Yes (Other)
  Sender: FDA-Public Use
  Company Number: US-CIPLA LTD.-2017US17605

PATIENT

DRUGS (3)
  1. MELOXICAM. [Suspect]
     Active Substance: MELOXICAM
     Indication: ARTHRITIS
     Dosage: 15 MG, UNK, (UNKNOWN MANUFACURER)
     Route: 065
     Dates: start: 201402
  2. NAPROXEN. [Suspect]
     Active Substance: NAPROXEN
     Dosage: UNK
     Route: 065
  3. MELOXICAM. [Suspect]
     Active Substance: MELOXICAM
     Dosage: 15 MG, QD (CIPLA MANUFACTURED)
     Route: 048
     Dates: start: 20170724

REACTIONS (3)
  - Condition aggravated [Not Recovered/Not Resolved]
  - Medication residue present [Unknown]
  - Product substitution issue [Unknown]

NARRATIVE: CASE EVENT DATE: 201707
